FAERS Safety Report 17457327 (Version 1)
Quarter: 2020Q1

REPORT INFORMATION
  Report Type: Report from Study
  Country: None (occurrence: US)
  Receive Date: 20200225
  Receipt Date: 20200225
  Transmission Date: 20200409
  Serious: Yes (Hospitalization, Other)
  Sender: FDA-Public Use
  Company Number: US-ABBVIE-20P-163-3224132-00

PATIENT
  Sex: Male

DRUGS (2)
  1. IMBRUVICA [Suspect]
     Active Substance: IBRUTINIB
     Indication: WHITE BLOOD CELL COUNT INCREASED
     Route: 048
     Dates: start: 20191105
  2. IMBRUVICA [Suspect]
     Active Substance: IBRUTINIB
     Indication: NON-HODGKIN^S LYMPHOMA
     Route: 048

REACTIONS (11)
  - Epistaxis [Not Recovered/Not Resolved]
  - Skin fissures [Unknown]
  - Contusion [Not Recovered/Not Resolved]
  - Cardiac failure congestive [Unknown]
  - Cerebrovascular accident [Unknown]
  - Skin ulcer [Unknown]
  - Weight increased [Not Recovered/Not Resolved]
  - Weight decreased [Unknown]
  - Depression [Unknown]
  - Fall [Unknown]
  - Peripheral swelling [Unknown]
